FAERS Safety Report 8093954-6 (Version None)
Quarter: 2012Q1

REPORT INFORMATION
  Report Type: 
  Country: None (occurrence: None)
  Receive Date: 20120130
  Receipt Date: 20120104
  Transmission Date: 20120608
  Serious: Yes (Other)
  Sender: FDA-Public Use
  Company Number: US-BAYER-2012-008433

PATIENT
  Sex: Female

DRUGS (3)
  1. YASMIN [Suspect]
  2. YAZ [Suspect]
  3. IBUPROFEN [Concomitant]

REACTIONS (3)
  - CHOLECYSTITIS ACUTE [None]
  - CHOLELITHIASIS [None]
  - ABDOMINAL PAIN UPPER [None]
